FAERS Safety Report 4973153-4 (Version None)
Quarter: 2006Q2

REPORT INFORMATION
  Report Type: 
  Country: None (occurrence: None)
  Receive Date: 20060410
  Receipt Date: 20060328
  Transmission Date: 20061013
  Serious: Yes (Other)
  Sender: FDA-Public Use
  Company Number: 2006043258

PATIENT
  Age: 57 Year
  Sex: Female
  Weight: 47.6277 kg

DRUGS (10)
  1. LYRICA [Suspect]
     Indication: NEURALGIA
     Dosage: 150 MG (150 MG, 1 IN 1 SEC), ORAL
     Route: 048
     Dates: start: 20060301, end: 20060301
  2. ALBUTEROL [Concomitant]
  3. ADVAIR DISKUS 100/50 [Concomitant]
  4. SPIRIVA [Concomitant]
  5. MOMETASONE (MOMETASONE) [Concomitant]
  6. TRAZODONE HCL [Concomitant]
  7. TRUSOPT [Concomitant]
  8. PAXIL [Concomitant]
  9. LIPITOR [Concomitant]
  10. ALTACE [Concomitant]

REACTIONS (5)
  - DISORIENTATION [None]
  - DIZZINESS [None]
  - DYSARTHRIA [None]
  - SINUSITIS [None]
  - THROAT TIGHTNESS [None]
